FAERS Safety Report 8775965 (Version 2)
Quarter: 2012Q4

REPORT INFORMATION
  Report Type: 
  Country: US (occurrence: US)
  Receive Date: 20120910
  Receipt Date: 20120919
  Transmission Date: 20130627
  Serious: Yes (Hospitalization)
  Sender: FDA-Public Use
  Company Number: US-MERCK-1209USA001134

PATIENT
  Sex: Female

DRUGS (3)
  1. ZETIA [Suspect]
     Indication: BLOOD CHOLESTEROL INCREASED
     Route: 048
  2. CRESTOR [Concomitant]
  3. TRILIPIX [Concomitant]

REACTIONS (1)
  - Rhabdomyolysis [Unknown]
